FAERS Safety Report 18359027 (Version 4)
Quarter: 2020Q4

REPORT INFORMATION
  Report Type: Spontaneous
  Country: US (occurrence: US)
  Receive Date: 20201008
  Receipt Date: 20201123
  Transmission Date: 20210114
  Serious: Yes (Hospitalization, Other)
  Sender: FDA-Public Use
  Company Number: US-ASTRAZENECA-2020SF27215

PATIENT
  Sex: Male
  Weight: 92.2 kg

DRUGS (39)
  1. FARXIGA [Suspect]
     Active Substance: DAPAGLIFLOZIN PROPANEDIOL
     Indication: TYPE 2 DIABETES MELLITUS
     Route: 048
     Dates: start: 201801, end: 20180529
  2. ATORVASTATIN [Concomitant]
     Active Substance: ATORVASTATIN
  3. PHENYLEPHRINE [Concomitant]
     Active Substance: PHENYLEPHRINE HYDROCHLORIDE
  4. FLAGYL [Concomitant]
     Active Substance: METRONIDAZOLE\METRONIDAZOLE HYDROCHLORIDE
  5. KETOCONAZOLE. [Concomitant]
     Active Substance: KETOCONAZOLE
  6. EXENATIDE. [Concomitant]
     Active Substance: EXENATIDE
  7. LINAGLIPTIN [Concomitant]
     Active Substance: LINAGLIPTIN
  8. FARXIGA [Suspect]
     Active Substance: DAPAGLIFLOZIN PROPANEDIOL
     Indication: WEIGHT DECREASED
     Route: 048
     Dates: start: 201801, end: 20180529
  9. POLYETHYLENE GLYCOL [Concomitant]
     Active Substance: POLYETHYLENE GLYCOLS
  10. CLINDAMYCIN. [Concomitant]
     Active Substance: CLINDAMYCIN
  11. MORPHINE [Concomitant]
     Active Substance: MORPHINE
  12. VANCOMYCIN [Concomitant]
     Active Substance: VANCOMYCIN
  13. FARXIGA [Suspect]
     Active Substance: DAPAGLIFLOZIN PROPANEDIOL
     Indication: BLOOD PRESSURE ABNORMAL
     Route: 048
     Dates: start: 201801, end: 20180529
  14. PROPOFOL. [Concomitant]
     Active Substance: PROPOFOL
  15. METFORMIN [Concomitant]
     Active Substance: METFORMIN HYDROCHLORIDE
  16. IBUPROFEN. [Concomitant]
     Active Substance: IBUPROFEN
  17. JENTADUETO [Concomitant]
     Active Substance: LINAGLIPTIN\METFORMIN HYDROCHLORIDE
  18. LISINOPRIL. [Concomitant]
     Active Substance: LISINOPRIL
  19. FLUZONE [Concomitant]
     Active Substance: INFLUENZA A VIRUS A/CALIFORNIA/7/2009 X-179A (H1N1) ANTIGEN (FORMALDEHYDE INACTIVATED)\INFLUENZA A VIRUS A/VICTORIA/210/2009 X-187 (H3N2) ANTIGEN (FORMALDEHYDE INACTIVATED)\INFLUENZA B VIRUS B/BRISBANE/60/2008 ANTIGEN (FORMALDEHYDE INACTIVATED)
  20. CLAVULANATE POTASSIUM [Concomitant]
     Active Substance: CLAVULANATE POTASSIUM
  21. CLINDAMYCIN HYDROCHLORIDE. [Concomitant]
     Active Substance: CLINDAMYCIN HYDROCHLORIDE
  22. AMOXICILLIN-CLAVULANATE [Concomitant]
     Active Substance: AMOXICILLIN\CLAVULANIC ACID
  23. CIPROFLOXACIN. [Concomitant]
     Active Substance: CIPROFLOXACIN
  24. ONDANSETRON [Concomitant]
     Active Substance: ONDANSETRON
  25. DEXTROSE. [Concomitant]
     Active Substance: DEXTROSE
  26. CECLOR [Concomitant]
     Active Substance: CEFACLOR
  27. ATORVASTATIN CALCIUM. [Concomitant]
     Active Substance: ATORVASTATIN CALCIUM
  28. MIDAZOLAM. [Concomitant]
     Active Substance: MIDAZOLAM
  29. FAMOTIDINE. [Concomitant]
     Active Substance: FAMOTIDINE
  30. SITAGLIPTIN [Concomitant]
     Active Substance: SITAGLIPTIN
  31. GLIPIZIDE. [Concomitant]
     Active Substance: GLIPIZIDE
  32. INSULIN LISPRO [Concomitant]
     Active Substance: INSULIN LISPRO
  33. ZOSYN [Concomitant]
     Active Substance: PIPERACILLIN SODIUM\TAZOBACTAM SODIUM
  34. AMOXICILLIN. [Concomitant]
     Active Substance: AMOXICILLIN
  35. METFORMIN HYDROCHLORIDE. [Concomitant]
     Active Substance: METFORMIN HYDROCHLORIDE
  36. LIDOCAINE. [Concomitant]
     Active Substance: LIDOCAINE
  37. ENOXAPARIN [Concomitant]
     Active Substance: ENOXAPARIN
  38. ACETAMINOPHEN. [Concomitant]
     Active Substance: ACETAMINOPHEN
  39. NAPROXEN. [Concomitant]
     Active Substance: NAPROXEN

REACTIONS (15)
  - Anal abscess [Unknown]
  - Cellulitis [Unknown]
  - Nerve injury [Unknown]
  - Rectal abscess [Unknown]
  - Scar [Unknown]
  - Perineal abscess [Unknown]
  - Abscess limb [Unknown]
  - Perirectal abscess [Unknown]
  - Pain [Unknown]
  - Necrotising fasciitis [Unknown]
  - Anal incontinence [Unknown]
  - Peritoneal abscess [Unknown]
  - Groin abscess [Unknown]
  - Pelvic abscess [Unknown]
  - Subcutaneous abscess [Unknown]
